FAERS Safety Report 9355647 (Version 1)
Quarter: 2013Q2

REPORT INFORMATION
  Report Type: Spontaneous
  Country: NL (occurrence: NL)
  Receive Date: 20130619
  Receipt Date: 20130619
  Transmission Date: 20140414
  Serious: Yes (Hospitalization)
  Sender: FDA-Public Use
  Company Number: NL-BRISTOL-MYERS SQUIBB COMPANY-19014133

PATIENT
  Age: 54 Year
  Sex: Female
  Weight: 110 kg

DRUGS (1)
  1. COAPROVEL FILM-COATED TABS 150/12.5 MG [Suspect]
     Indication: PNEUMONIA
     Dosage: 1DF: ^2DD 1^
     Route: 048
     Dates: start: 20121208, end: 20121214

REACTIONS (4)
  - Depression [Recovered/Resolved with Sequelae]
  - Fungal infection [Recovered/Resolved with Sequelae]
  - Anxiety [Recovered/Resolved with Sequelae]
  - Off label use [Unknown]
